FAERS Safety Report 23013842 (Version 1)
Quarter: 2023Q4

REPORT INFORMATION
  Report Type: Spontaneous
  Country: PT (occurrence: PT)
  Receive Date: 20231001
  Receipt Date: 20231001
  Transmission Date: 20240110
  Serious: Yes (Hospitalization, Other)
  Sender: FDA-Public Use
  Company Number: None

PATIENT
  Age: 61 Year
  Sex: Male

DRUGS (22)
  1. PREDNISOLONE [Suspect]
     Active Substance: PREDNISOLONE
     Indication: Immunosuppressant drug therapy
     Dosage: 100 MILLIGRAM (PULSE THERAPY)
     Route: 048
     Dates: start: 2020, end: 2020
  2. PREDNISOLONE [Suspect]
     Active Substance: PREDNISOLONE
     Indication: Transplant rejection
     Dosage: 100 MILLIGRAM (PULSE THERAPY)
     Route: 048
     Dates: start: 202107, end: 2021
  3. PREDNISOLONE [Suspect]
     Active Substance: PREDNISOLONE
     Indication: Transplant rejection
     Dosage: 10 MILLIGRAM PER DAY
     Route: 065
  4. PREDNISOLONE [Suspect]
     Active Substance: PREDNISOLONE
     Dosage: 1 MG/KG (~DOSE INCREASED )
     Route: 065
  5. PREDNISOLONE [Suspect]
     Active Substance: PREDNISOLONE
     Dosage: UNK, (GRADUAL WEANING OF THE DOSE AND AGAIN INCREASED TO 1 MG/KG)
     Route: 065
  6. PREDNISOLONE [Suspect]
     Active Substance: PREDNISOLONE
     Dosage: UNK, (GRADUAL WEANING OF THE DOSE AND AGAIN INCREASED TO 1 MG/KG)
     Route: 065
  7. CYCLOSPORINE [Interacting]
     Active Substance: CYCLOSPORINE
     Indication: Immunosuppressant drug therapy
     Dosage: 175 MILLIGRAM PER DAY
     Route: 065
  8. CYCLOSPORINE [Interacting]
     Active Substance: CYCLOSPORINE
     Indication: Transplant rejection
     Dosage: 250 MILLIGRAM, BID (TO REACH THERAPEUTIC LEVELS (100-200 NG/ML))
     Route: 065
  9. MYCOPHENOLATE MOFETIL [Suspect]
     Active Substance: MYCOPHENOLATE MOFETIL
     Indication: Immunosuppressant drug therapy
     Dosage: 1000 MILLIGRAM, BID
     Route: 065
  10. MYCOPHENOLATE MOFETIL [Suspect]
     Active Substance: MYCOPHENOLATE MOFETIL
     Indication: Transplant rejection
  11. RIFAMPIN [Interacting]
     Active Substance: RIFAMPIN
     Indication: Cutaneous tuberculosis
     Dosage: UNK
     Route: 065
  12. RIFAMPIN [Interacting]
     Active Substance: RIFAMPIN
     Indication: Disseminated tuberculosis
  13. ISONIAZID [Suspect]
     Active Substance: ISONIAZID
     Indication: Cutaneous tuberculosis
     Dosage: UNK
     Route: 065
  14. ISONIAZID [Suspect]
     Active Substance: ISONIAZID
     Indication: Disseminated tuberculosis
  15. PYRAZINAMIDE [Suspect]
     Active Substance: PYRAZINAMIDE
     Indication: Cutaneous tuberculosis
     Dosage: UNK
     Route: 065
  16. PYRAZINAMIDE [Suspect]
     Active Substance: PYRAZINAMIDE
     Indication: Disseminated tuberculosis
  17. ETHAMBUTOL [Suspect]
     Active Substance: ETHAMBUTOL HYDROCHLORIDE
     Indication: Cutaneous tuberculosis
     Dosage: UNK
     Route: 065
  18. ETHAMBUTOL [Suspect]
     Active Substance: ETHAMBUTOL HYDROCHLORIDE
     Indication: Disseminated tuberculosis
  19. RIVAROXABAN [Concomitant]
     Active Substance: RIVAROXABAN
     Indication: Product used for unknown indication
     Dosage: 15 MILLIGRAM PER DAY
     Route: 065
  20. ATORVASTATIN [Concomitant]
     Active Substance: ATORVASTATIN
     Indication: Product used for unknown indication
     Dosage: 20 MILLIGRAM PER DAY
     Route: 065
  21. COTRIMOXAZOLE [Concomitant]
     Active Substance: SULFAMETHOXAZOLE\TRIMETHOPRIM
     Indication: Prophylaxis
     Dosage: UNK
     Route: 065
  22. DILTIAZEM [Concomitant]
     Active Substance: DILTIAZEM
     Indication: Product used for unknown indication
     Dosage: 120 MILLIGRAM PER DAY
     Route: 065

REACTIONS (9)
  - Hepatic function abnormal [Recovered/Resolved]
  - Immune reconstitution inflammatory syndrome [Recovered/Resolved]
  - Cholestasis [Recovered/Resolved]
  - Renal impairment [Recovered/Resolved]
  - Immunosuppressant drug level decreased [Unknown]
  - Drug interaction [Unknown]
  - Cutaneous tuberculosis [Recovered/Resolved]
  - Disseminated tuberculosis [Recovered/Resolved]
  - Off label use [Unknown]
